FAERS Safety Report 15034157 (Version 2)
Quarter: 2018Q3

REPORT INFORMATION
  Report Type: Report from Study
  Country: JP (occurrence: JP)
  Receive Date: 20180620
  Receipt Date: 20180713
  Transmission Date: 20181010
  Serious: Yes (Other)
  Sender: FDA-Public Use
  Company Number: JP-TEVA-2018-JP-909438

PATIENT
  Age: 7 Decade
  Sex: Male

DRUGS (1)
  1. DOCETAXEL. [Suspect]
     Active Substance: DOCETAXEL
     Indication: SMALL CELL CARCINOMA
     Route: 065

REACTIONS (2)
  - Bacteraemia [Recovered/Resolved]
  - Helicobacter infection [Recovered/Resolved]
